FAERS Safety Report 17655875 (Version 1)
Quarter: 2020Q2

REPORT INFORMATION
  Report Type: Spontaneous
  Country: US (occurrence: US)
  Receive Date: 20200409
  Receipt Date: 20200409
  Transmission Date: 20200713
  Serious: Yes (Hospitalization)
  Sender: FDA-Public Use
  Company Number: None

PATIENT
  Age: 70 Year
  Sex: Male

DRUGS (2)
  1. BENDAMUSTINE (BENDAMUSTINE HCL 100MG/VIL INJ) [Suspect]
     Active Substance: BENDAMUSTINE HYDROCHLORIDE
     Indication: CHRONIC LYMPHOCYTIC LEUKAEMIA
     Dosage: ?          OTHER FREQUENCY:UNKNOWN;OTHER ROUTE:IV?
     Route: 042
     Dates: start: 20180129
  2. RITUXIMAB (RITUXIMAB 10MG/ML INJ,VIL, 10ML) [Suspect]
     Active Substance: RITUXIMAB
     Indication: CHRONIC LYMPHOCYTIC LEUKAEMIA
     Dosage: ?          OTHER ROUTE:IV?
     Route: 042
     Dates: start: 20180129

REACTIONS (4)
  - Leukopenia [None]
  - Thrombocytopenia [None]
  - Febrile neutropenia [None]
  - Anaemia [None]

NARRATIVE: CASE EVENT DATE: 20180209
